FAERS Safety Report 13718377 (Version 1)
Quarter: 2017Q3

REPORT INFORMATION
  Report Type: Report from Study
  Country: KR (occurrence: KR)
  Receive Date: 20170705
  Receipt Date: 20170705
  Transmission Date: 20171127
  Serious: Yes (Hospitalization)
  Sender: FDA-Public Use
  Company Number: KR-DSJP-DSJ-2017-112206

PATIENT

DRUGS (30)
  1. PITAVASTATIN CALCIUM [Concomitant]
     Active Substance: PITAVASTATIN CALCIUM
     Indication: HYPERLIPIDAEMIA
     Dosage: 2 MG, QD
     Route: 048
     Dates: start: 20170120, end: 20170316
  2. MONTELUKAST SODIUM. [Concomitant]
     Active Substance: MONTELUKAST SODIUM
     Indication: DYSPNOEA
     Dosage: 10 MG, QD
     Route: 048
     Dates: start: 20170612
  3. ASIMA [Concomitant]
     Indication: DYSPNOEA
     Dosage: 400 MG, BID
     Route: 048
     Dates: start: 20170612
  4. TRITACE [Concomitant]
     Active Substance: RAMIPRIL
     Indication: HYPERTENSION
     Dosage: 5 MG, QD
     Route: 048
     Dates: start: 20170120, end: 20170316
  5. NEBISTOL [Concomitant]
     Indication: HYPERTENSION
     Dosage: 1.25 MG, QD
     Route: 048
     Dates: start: 20170317
  6. VASTINAN [Concomitant]
     Indication: ANGINA UNSTABLE
     Dosage: 35 MG, BID
     Route: 048
     Dates: start: 20170317, end: 20170413
  7. FURIX [Concomitant]
     Active Substance: FUROSEMIDE
     Dosage: 40 MG, QD
     Route: 048
     Dates: start: 20170515, end: 20170611
  8. STILLEN 2X [Concomitant]
     Dosage: 1 DF, QD
     Route: 048
     Dates: start: 20170515
  9. TORSEMIDE. [Concomitant]
     Active Substance: TORSEMIDE
     Indication: HYPERTENSION
     Dosage: 5 MG, QD
     Route: 048
     Dates: start: 20170317, end: 20170611
  10. SIGMART [Concomitant]
     Active Substance: NICORANDIL
     Indication: ANGINA UNSTABLE
     Dosage: 2.5 MG, BID
     Route: 048
     Dates: start: 20170120, end: 20170316
  11. ISOKET [Concomitant]
     Active Substance: ISOSORBIDE DINITRATE
     Dosage: 40 MG, BID
     Route: 048
     Dates: start: 20170515, end: 20170611
  12. STILLEN 2X [Concomitant]
     Indication: ABDOMINAL DISCOMFORT
     Dosage: 1 DF, BID
     Route: 048
     Dates: start: 20170317, end: 20170514
  13. LIVARO V [Concomitant]
     Indication: HYPERLIPIDAEMIA
     Dosage: 2/80MG, QD
     Route: 048
     Dates: start: 20170317, end: 20170514
  14. ASPIRIN. [Suspect]
     Active Substance: ASPIRIN
     Indication: ANGINA UNSTABLE
     Dosage: 100 MG, QD
     Route: 048
     Dates: start: 20170414
  15. FURIX [Concomitant]
     Active Substance: FUROSEMIDE
     Indication: HYPERTENSION
     Dosage: 40 MG, BID
     Route: 048
     Dates: start: 20170119, end: 20170514
  16. HERBEN [Concomitant]
     Indication: HYPERTENSION
     Dosage: 90 MG, QD
     Route: 048
     Dates: start: 20170217
  17. SKAD [Concomitant]
     Active Substance: AMLODIPINE MALEATE
     Indication: HYPERTENSION
     Dosage: 5 MG, BID
     Route: 048
     Dates: start: 20170120, end: 20170316
  18. LIVARO V [Concomitant]
     Dosage: 1/40MG, QD
     Route: 048
     Dates: start: 20170515
  19. TRAJENTA [Concomitant]
     Active Substance: LINAGLIPTIN
     Indication: DIABETES MELLITUS
     Dosage: 1 DF, QD
     Route: 048
     Dates: start: 20170317
  20. HERBEN [Concomitant]
     Dosage: 200 MG, MAINTENANCE
     Route: 042
     Dates: start: 20170616, end: 20170619
  21. SIGMART [Concomitant]
     Active Substance: NICORANDIL
     Dosage: 5 MG, BID
     Route: 048
     Dates: start: 20170612
  22. METFORMIN [Concomitant]
     Active Substance: METFORMIN HYDROCHLORIDE
     Indication: DIABETES MELLITUS
     Dosage: 250 MG, BID
     Route: 048
     Dates: start: 20170120, end: 20170316
  23. HERBEN [Concomitant]
     Indication: ATRIAL FIBRILLATION
     Dosage: 10 MG, LOADING
     Route: 042
     Dates: start: 20170616, end: 20170616
  24. DOCUSATE SODIUM W/SORBITOL [Concomitant]
     Indication: CHRONIC FATIGUE SYNDROME
     Dosage: 1 DF, QD
     Route: 054
     Dates: start: 20170616, end: 20170616
  25. EDOXABAN [Suspect]
     Active Substance: EDOXABAN TOSYLATE
     Indication: ATRIAL FIBRILLATION
     Dosage: 60MG/DAY
     Route: 048
     Dates: start: 20170217, end: 20170616
  26. CLOPIDOGREL HYDROGEN SULFATE [Suspect]
     Active Substance: CLOPIDOGREL BISULFATE
     Indication: ANGINA UNSTABLE
     Dosage: 75 MG, QD
     Route: 048
     Dates: start: 20170120, end: 20170413
  27. MUCOSTA [Concomitant]
     Active Substance: REBAMIPIDE
     Indication: ABDOMINAL DISCOMFORT
     Dosage: 100 MG, BID
     Route: 048
     Dates: start: 20170120, end: 20170316
  28. FURIX [Concomitant]
     Active Substance: FUROSEMIDE
     Dosage: 60 MG, QD
     Route: 048
     Dates: start: 20170612
  29. ISOKET [Concomitant]
     Active Substance: ISOSORBIDE DINITRATE
     Indication: ANGINA UNSTABLE
     Dosage: 40 MG, BID
     Route: 048
     Dates: start: 20170217, end: 20170413
  30. POLYBUTINE [Concomitant]
     Indication: ABDOMINAL DISCOMFORT
     Dosage: 100 MG, BID
     Route: 048
     Dates: start: 20170612

REACTIONS (3)
  - Haematochezia [Recovering/Resolving]
  - Anal abscess [Recovering/Resolving]
  - Acute kidney injury [Recovering/Resolving]

NARRATIVE: CASE EVENT DATE: 20170320
